FAERS Safety Report 22070180 (Version 2)
Quarter: 2023Q1

REPORT INFORMATION
  Report Type: Spontaneous
  Country: CN (occurrence: CN)
  Receive Date: 20230307
  Receipt Date: 20230324
  Transmission Date: 20230418
  Serious: Yes (Other)
  Sender: FDA-Public Use
  Company Number: CN-BRISTOL-MYERS SQUIBB COMPANY-2023-030294

PATIENT
  Age: 53 Year
  Sex: Male

DRUGS (3)
  1. PARAPLATIN [Suspect]
     Active Substance: CARBOPLATIN
     Indication: Squamous cell carcinoma of lung
     Dosage: CARBOPLATIN 650MG D1/Q21D
     Dates: start: 20211217, end: 20220421
  2. PACLITAXEL [Suspect]
     Active Substance: PACLITAXEL
     Indication: Squamous cell carcinoma of lung
     Dosage: D1
     Dates: start: 20211217, end: 20220421
  3. KEYTRUDA [Suspect]
     Active Substance: PEMBROLIZUMAB
     Indication: Squamous cell carcinoma of lung
     Dosage: D1
     Dates: start: 20211217, end: 20220421

REACTIONS (4)
  - Haematochezia [Recovering/Resolving]
  - White blood cell count decreased [Recovered/Resolved]
  - Hepatic function abnormal [Unknown]
  - Off label use [Unknown]

NARRATIVE: CASE EVENT DATE: 20220107
